FAERS Safety Report 22678339 (Version 4)
Quarter: 2023Q4

REPORT INFORMATION
  Report Type: Report from Study
  Country: US (occurrence: US)
  Receive Date: 20230706
  Receipt Date: 20231215
  Transmission Date: 20240110
  Serious: Yes (Other)
  Sender: FDA-Public Use
  Company Number: US-AIMMUNE THERAPEUTICS, INC.-2023AIMT00648

PATIENT

DRUGS (14)
  1. VOWST [Suspect]
     Active Substance: DONOR HUMAN STOOL SPORES (ETHANOL TREATED)
     Indication: Clostridium difficile infection
     Dosage: 4 CAPSULES, 1X/DAY
     Route: 048
     Dates: start: 20230624, end: 20230626
  2. VOWST [Suspect]
     Active Substance: DONOR HUMAN STOOL SPORES (ETHANOL TREATED)
     Dosage: 4 CAPSULES, ONCE, LAST DOSE PRIOR EVENT
     Route: 048
     Dates: start: 20230626, end: 20230626
  3. ZENPEP [Concomitant]
     Active Substance: PANCRELIPASE AMYLASE\PANCRELIPASE LIPASE\PANCRELIPASE PROTEASE
     Indication: Pancreatic failure
     Dosage: UNK USP UNIT
     Route: 048
     Dates: start: 20230227
  4. ZENPEP [Concomitant]
     Active Substance: PANCRELIPASE AMYLASE\PANCRELIPASE LIPASE\PANCRELIPASE PROTEASE
     Dosage: UNK USP UNITS, ONCE, LAST DOSE PRIOR EVENTS
     Route: 048
  5. SPIRONOLACTONE [Concomitant]
     Active Substance: SPIRONOLACTONE
     Indication: Cardiac failure congestive
     Dosage: 100 MG, 1X/DAY
  6. FLUOXETINE [Concomitant]
     Active Substance: FLUOXETINE HYDROCHLORIDE
     Indication: Depression
     Dosage: 20 MG, 1X/DAY
  7. OMEPRAZOLE [Concomitant]
     Active Substance: OMEPRAZOLE
     Indication: Gastrooesophageal reflux disease
     Dosage: 20 MG, 1X/DAY
  8. WARFARIN [Concomitant]
     Active Substance: WARFARIN
     Indication: Atrial fibrillation
     Dosage: 5 MG
  9. DIGOXIN [Concomitant]
     Active Substance: DIGOXIN
     Indication: Cardiac failure congestive
     Dosage: 0.125 MG, 1X/DAY
  10. GABAPENTIN [Concomitant]
     Active Substance: GABAPENTIN
     Indication: Neuralgia
     Dosage: 200 MG
  11. GABAPENTIN [Concomitant]
     Active Substance: GABAPENTIN
     Indication: Restless legs syndrome
  12. TYLENOL [Concomitant]
     Active Substance: ACETAMINOPHEN
     Indication: Arthritis
     Dosage: 650 MG, 2X/DAY
  13. ALBUTEROL [Concomitant]
     Active Substance: ALBUTEROL
     Indication: Chronic obstructive pulmonary disease
     Dosage: 90 MCG , 2X/DAY
  14. HYDROCODONE [Concomitant]
     Active Substance: HYDROCODONE
     Indication: Arthritis
     Dosage: AS NEEDED

REACTIONS (2)
  - Haemorrhoidal haemorrhage [Recovering/Resolving]
  - Diarrhoea [Not Recovered/Not Resolved]

NARRATIVE: CASE EVENT DATE: 20230601
